FAERS Safety Report 8095666-1 (Version None)
Quarter: 2012Q1

REPORT INFORMATION
  Report Type: 
  Country: None (occurrence: None)
  Receive Date: 20120129
  Receipt Date: 20111227
  Transmission Date: 20120608
  Serious: No
  Sender: FDA-Public Use
  Company Number: US-ABBOTT-11P-163-0887342-00

PATIENT
  Age: 25 Year
  Sex: Female

DRUGS (9)
  1. CLOBETASOL [Concomitant]
     Indication: PRODUCT USED FOR UNKNOWN INDICATION
     Route: 061
  2. METHOTREXATE [Suspect]
     Dosage: 10 MG WEEKLY
  3. MIRENA [Concomitant]
     Indication: PRODUCT USED FOR UNKNOWN INDICATION
     Dosage: IUD
  4. FLUOCINONIDE [Concomitant]
     Indication: PRODUCT USED FOR UNKNOWN INDICATION
     Route: 061
  5. METHOTREXATE [Suspect]
     Indication: PRODUCT USED FOR UNKNOWN INDICATION
  6. MULTI-VITAMIN [Concomitant]
     Indication: PRODUCT USED FOR UNKNOWN INDICATION
     Dosage: DAILY
  7. HUMIRA [Suspect]
     Indication: PSORIASIS
     Dates: start: 20111114, end: 20111219
  8. BIOTIN [Concomitant]
     Indication: PRODUCT USED FOR UNKNOWN INDICATION
     Dosage: DAILY
  9. ELIDEL [Concomitant]
     Indication: PRODUCT USED FOR UNKNOWN INDICATION
     Route: 061

REACTIONS (7)
  - INJECTION SITE ERYTHEMA [None]
  - AMNESIA [None]
  - ALOPECIA [None]
  - BLOOD TESTOSTERONE INCREASED [None]
  - POLYCYSTIC OVARIES [None]
  - INJECTION SITE PRURITUS [None]
  - HYPERSENSITIVITY [None]
